FAERS Safety Report 8239324-9 (Version None)
Quarter: 2012Q1

REPORT INFORMATION
  Report Type: 
  Country: None (occurrence: None)
  Receive Date: 20120326
  Receipt Date: 20120314
  Transmission Date: 20120608
  Serious: Yes (Other)
  Sender: FDA-Public Use
  Company Number: 1227930

PATIENT
  Sex: Male
  Weight: 117.27 kg

DRUGS (11)
  1. MEROPENEM FOR INJECTIN (MEROPENEM) [Concomitant]
  2. LEVAQUIN [Concomitant]
  3. BENADRYL [Concomitant]
  4. HEPARIN SODIUM INJECTION [Concomitant]
  5. VENTOLIN [Concomitant]
  6. MEPERIDINE HYDROCHLORIDE [Suspect]
     Indication: PRODUCT USED FOR UNKNOWN INDICATION
  7. VANCOMYCIN HCL [Concomitant]
  8. LEVOPHED [Concomitant]
  9. PLAVIX [Concomitant]
  10. HUMULIN R [Concomitant]
  11. (CARDIOVASCULAR SYSTEM DRUGS) [Concomitant]

REACTIONS (6)
  - PAROSMIA [None]
  - HYPERTENSION [None]
  - HYPERHIDROSIS [None]
  - DYSGEUSIA [None]
  - NAUSEA [None]
  - DYSPNOEA [None]
